FAERS Safety Report 9592452 (Version 2)
Quarter: 2013Q4

REPORT INFORMATION
  Report Type: Spontaneous
  Country: US (occurrence: US)
  Receive Date: 20131004
  Receipt Date: 20131021
  Transmission Date: 20140711
  Serious: No
  Sender: FDA-Public Use
  Company Number: US-B.I. PHARMACEUTICALS,INC./RIDGEFIELD-2013-BI-30390BP

PATIENT
  Age: 57 Year
  Sex: Female
  Weight: 64 kg

DRUGS (1)
  1. SPIRIVA [Suspect]
     Indication: CHEST DISCOMFORT
     Dosage: 18 MCG
     Route: 055
     Dates: start: 2013

REACTIONS (4)
  - Retching [Unknown]
  - Drug ineffective [Recovered/Resolved]
  - Product quality issue [Recovered/Resolved]
  - Product quality issue [Recovered/Resolved]
